FAERS Safety Report 4832212-7 (Version None)
Quarter: 2005Q4

REPORT INFORMATION
  Report Type: 
  Country: None (occurrence: None)
  Receive Date: 20051118
  Receipt Date: 20051109
  Transmission Date: 20060501
  Serious: Yes (Hospitalization)
  Sender: FDA-Public Use
  Company Number: US-MERCK-0511USA01776

PATIENT
  Age: 71 Year
  Sex: Male
  Weight: 111 kg

DRUGS (8)
  1. ALLOPURINOL [Concomitant]
     Route: 065
  2. ALLOPURINOL [Concomitant]
     Route: 065
  3. ATENOLOL [Concomitant]
     Route: 065
  4. ALTACE [Concomitant]
     Route: 065
  5. VITAMIN E [Concomitant]
     Route: 065
  6. ASPIRIN [Concomitant]
     Route: 065
  7. PRAVACHOL [Concomitant]
     Route: 065
  8. VIOXX [Suspect]
     Indication: ARTHRALGIA
     Route: 048
     Dates: start: 20001201, end: 20030901

REACTIONS (7)
  - ANAEMIA [None]
  - CARDIAC ARREST [None]
  - CHEST PAIN [None]
  - COLONIC POLYP [None]
  - DIABETES MELLITUS [None]
  - HYPERLIPIDAEMIA [None]
  - VENOUS STASIS [None]
